FAERS Safety Report 7521980-1 (Version None)
Quarter: 2011Q2

REPORT INFORMATION
  Report Type: 
  Country: None (occurrence: None)
  Receive Date: 20110603
  Receipt Date: 20110523
  Transmission Date: 20111010
  Serious: Yes (Other)
  Sender: FDA-Public Use
  Company Number: JP-NOVOPROD-329063

PATIENT
  Sex: Female

DRUGS (3)
  1. NOVORAPID 30 MIX CHU [Suspect]
     Indication: TYPE 2 DIABETES MELLITUS
     Dosage: UNK
  2. METFORMIN HCL [Concomitant]
  3. THIAZOLIDINEDIONES [Concomitant]

REACTIONS (2)
  - CONDITION AGGRAVATED [None]
  - RETINOPATHY [None]
